FAERS Safety Report 7179293-6 (Version None)
Quarter: 2010Q4

REPORT INFORMATION
  Report Type: 
  Country: None (occurrence: None)
  Receive Date: 20101221
  Receipt Date: 20101208
  Transmission Date: 20110411
  Serious: Yes (Hospitalization, Other)
  Sender: FDA-Public Use
  Company Number: PHMT2007CA01729

PATIENT
  Sex: Female

DRUGS (15)
  1. SANDOSTATIN LAR [Suspect]
     Indication: NEUROENDOCRINE TUMOUR
     Dosage: 40 MG, TIW
     Route: 030
     Dates: start: 20000701
  2. SANDOSTATIN LAR [Suspect]
     Dosage: 40 MG, EVERY 4 WEEKS
     Route: 030
  3. SANDOSTATIN LAR [Suspect]
     Dosage: 30 MG EVERY 4 WEEKS
     Route: 030
     Dates: end: 20090806
  4. SANDOSTATIN LAR [Suspect]
     Dosage: 30 MG, QMO
     Route: 030
  5. CHOLESTYRAMINE RESIN [Concomitant]
  6. PARIET [Concomitant]
  7. SERTRALINE HYDROCHLORIDE [Concomitant]
  8. NADOLOL [Concomitant]
  9. ESTROGEN NOS [Concomitant]
  10. NORVASC [Concomitant]
  11. CHLORTHALIDONE [Concomitant]
  12. FUROSEMIDE [Concomitant]
  13. PANTOPRAZOLE [Concomitant]
  14. RADIATION TREATMENT [Concomitant]
  15. DIURETICS [Concomitant]
     Dosage: UNK
     Dates: end: 20100630

REACTIONS (27)
  - ABDOMINAL PAIN [None]
  - ABDOMINAL PAIN UPPER [None]
  - ARTHRALGIA [None]
  - ASTHENIA [None]
  - BACK PAIN [None]
  - BIOPSY THYROID GLAND [None]
  - BLOOD PRESSURE DECREASED [None]
  - BLOOD PRESSURE INCREASED [None]
  - CHOLECYSTECTOMY [None]
  - COLECTOMY [None]
  - CONSTIPATION [None]
  - DEPRESSION [None]
  - DIARRHOEA [None]
  - DYSPNOEA [None]
  - EPISTAXIS [None]
  - FATIGUE [None]
  - HAEMOGLOBIN DECREASED [None]
  - HEPATIC NEOPLASM [None]
  - LIVER OPERATION [None]
  - LOCAL SWELLING [None]
  - MUSCULOSKELETAL CHEST PAIN [None]
  - NAUSEA [None]
  - PALLOR [None]
  - PERICARDIAL EFFUSION [None]
  - POST PROCEDURAL COMPLICATION [None]
  - RECTAL HAEMORRHAGE [None]
  - THYROID DISORDER [None]
